FAERS Safety Report 5441624-2 (Version None)
Quarter: 2007Q3

REPORT INFORMATION
  Report Type: 
  Country: None (occurrence: None)
  Receive Date: 20070904
  Receipt Date: 20070822
  Transmission Date: 20080115
  Serious: Yes (Other)
  Sender: FDA-Public Use
  Company Number: US-SANOFI-SYNTHELABO-A03200703714

PATIENT
  Sex: Female
  Weight: 108.9 kg

DRUGS (14)
  1. AMBIEN [Suspect]
     Indication: INSOMNIA
     Route: 048
     Dates: start: 19980101
  2. CALCIUM [Concomitant]
     Dosage: UNK
     Route: 048
  3. MULTI-VITAMIN [Concomitant]
     Dosage: UNK
     Route: 048
  4. LUMIGAN [Concomitant]
     Dosage: UNK
     Route: 047
  5. K-CHLOR [Concomitant]
     Dosage: UNK
     Route: 048
  6. FUROSEMIDE [Concomitant]
     Dosage: UNK
     Route: 048
  7. LIPITOR [Concomitant]
     Dosage: UNK
     Route: 048
  8. FLEXERIL [Concomitant]
     Dosage: UNK
     Route: 048
  9. IBUPROFEN [Concomitant]
     Dosage: UNK
     Route: 048
  10. LEVOXYL [Concomitant]
     Dosage: UNK
     Route: 048
  11. WELLBUTRIN [Concomitant]
     Dosage: UNK
     Route: 048
  12. SEROQUEL [Concomitant]
     Dosage: UNK
     Route: 048
  13. PAXIL [Concomitant]
     Dosage: UNK
     Route: 048
  14. AMBIEN CR [Interacting]
     Indication: INSOMNIA
     Route: 048
     Dates: start: 20060101

REACTIONS (7)
  - AMNESIA [None]
  - DRUG ABUSER [None]
  - EATING DISORDER [None]
  - INTENTIONAL OVERDOSE [None]
  - ROAD TRAFFIC ACCIDENT [None]
  - SOMNAMBULISM [None]
  - WEIGHT INCREASED [None]
